FAERS Safety Report 9396822 (Version 1)
Quarter: 2013Q3

REPORT INFORMATION
  Report Type: Report from Study
  Country: DE (occurrence: DE)
  Receive Date: 20130712
  Receipt Date: 20130712
  Transmission Date: 20140515
  Serious: Yes (Death)
  Sender: FDA-Public Use
  Company Number: DE-BIOGENIDEC-2013BI060754

PATIENT
  Sex: Female

DRUGS (3)
  1. TYSABRI [Suspect]
     Indication: MULTIPLE SCLEROSIS
     Dates: start: 20070131
  2. CARBAMAZEPIN [Concomitant]
  3. CITALOPRAM [Concomitant]

REACTIONS (1)
  - Respiratory fume inhalation disorder [Fatal]
